FAERS Safety Report 7916203-5 (Version None)
Quarter: 2011Q4

REPORT INFORMATION
  Report Type: 
  Country: None (occurrence: None)
  Receive Date: 20111116
  Receipt Date: 20111108
  Transmission Date: 20120403
  Serious: No
  Sender: FDA-Public Use
  Company Number: US-BIOGENIDEC-2011BI017283

PATIENT
  Sex: Female

DRUGS (1)
  1. TYSABRI [Suspect]
     Indication: MULTIPLE SCLEROSIS
     Route: 042
     Dates: start: 20090617

REACTIONS (14)
  - WOUND HAEMORRHAGE [None]
  - FALL [None]
  - FEAR [None]
  - BALANCE DISORDER [None]
  - ARTHRITIS [None]
  - HEAD INJURY [None]
  - SPEECH DISORDER [None]
  - UPPER LIMB FRACTURE [None]
  - JOINT SWELLING [None]
  - SWELLING [None]
  - MULTIPLE SCLEROSIS RELAPSE [None]
  - OSTEOARTHRITIS [None]
  - HEMIPARESIS [None]
  - WRIST FRACTURE [None]
